FAERS Safety Report 24798204 (Version 1)
Quarter: 2025Q1

REPORT INFORMATION
  Report Type: Spontaneous
  Country: CA (occurrence: CA)
  Receive Date: 20250102
  Receipt Date: 20250102
  Transmission Date: 20250408
  Serious: Yes (Other)
  Sender: TEVA
  Company Number: CA-TEVA-VS-3282150

PATIENT
  Age: 21 Year
  Sex: Female

DRUGS (2)
  1. VENLAFAXINE [Suspect]
     Active Substance: VENLAFAXINE HYDROCHLORIDE
     Indication: Anxiety
     Dosage: ACT VENLAFAXINE XR, DOSE FORM: CAPSULE, EXTENDED RELEASE
     Route: 048
  2. OMEPRAZOLE [Concomitant]
     Active Substance: OMEPRAZOLE
     Indication: Product used for unknown indication
     Route: 065

REACTIONS (11)
  - Dyspnoea [Recovering/Resolving]
  - Feeling cold [Recovering/Resolving]
  - Palpitations [Recovering/Resolving]
  - Pain in extremity [Recovering/Resolving]
  - Tremor [Recovering/Resolving]
  - Blood pressure increased [Recovering/Resolving]
  - Panic reaction [Recovering/Resolving]
  - Hyperhidrosis [Recovering/Resolving]
  - Vision blurred [Recovering/Resolving]
  - Hot flush [Recovering/Resolving]
  - Mydriasis [Recovering/Resolving]
